FAERS Safety Report 14341710 (Version 1)
Quarter: 2018Q1

REPORT INFORMATION
  Report Type: Spontaneous
  Country: US (occurrence: US)
  Receive Date: 20180102
  Receipt Date: 20180102
  Transmission Date: 20180509
  Serious: Yes (Other)
  Sender: FDA-Public Use
  Company Number: US-AUROBINDO-AUR-APL-2017-47159

PATIENT
  Sex: Male

DRUGS (7)
  1. RIBAVIRIN. [Suspect]
     Active Substance: RIBAVIRIN
     Indication: LASSA FEVER
     Dosage: 16 MG/KG, EVERY 6 HOURS
     Route: 042
  2. RIBAVIRIN. [Suspect]
     Active Substance: RIBAVIRIN
     Dosage: 1 G, EVERY 8 HOURS
     Route: 048
  3. FAVIPIRAVIR [Suspect]
     Active Substance: FAVIPIRAVIR
     Indication: LASSA FEVER
     Dosage: 2000 MG, ONCE A DAY
     Route: 048
  4. FAVIPIRAVIR [Suspect]
     Active Substance: FAVIPIRAVIR
     Dosage: 1000 MG, EVERY 12 HOURS
  5. RIBAVIRIN. [Suspect]
     Active Substance: RIBAVIRIN
     Indication: LASSA FEVER
     Dosage: 2 G, UNK
     Route: 048
  6. RIBAVIRIN. [Suspect]
     Active Substance: RIBAVIRIN
     Dosage: 8 MG/KG, EVERY 8 HOURS
     Route: 042
  7. ARTEMETHER + LUMEFANTRINE [Concomitant]
     Indication: MALARIA
     Dosage: UNK

REACTIONS (1)
  - Transaminases increased [Unknown]
